FAERS Safety Report 4471214-X (Version None)
Quarter: 2004Q4

REPORT INFORMATION
  Report Type: 
  Country: None (occurrence: None)
  Receive Date: 20041006
  Receipt Date: 20040923
  Transmission Date: 20050328
  Serious: Yes (Hospitalization, Other)
  Sender: FDA-Public Use
  Company Number: 2004069068

PATIENT
  Age: 71 Year
  Sex: Male

DRUGS (1)
  1. ATARAX [Suspect]
     Indication: ILL-DEFINED DISORDER
     Dosage: 75 MG (25 MG, 3 IN 1 D), ORAL
     Route: 048
     Dates: start: 20040823, end: 20040825

REACTIONS (6)
  - ANXIETY [None]
  - BRONCHOSPASM [None]
  - DRUG RESISTANCE [None]
  - DYSPNOEA [None]
  - PROSTATIC ADENOMA [None]
  - URINARY RETENTION [None]
